FAERS Safety Report 24310072 (Version 1)
Quarter: 2024Q3

REPORT INFORMATION
  Report Type: Spontaneous
  Country: US (occurrence: US)
  Receive Date: 20240912
  Receipt Date: 20240912
  Transmission Date: 20241017
  Serious: Yes (Other)
  Sender: DR REDDYS
  Company Number: US-DRL-USA-SPO/USA/24/0013031

PATIENT
  Age: 52 Year
  Sex: Female

DRUGS (8)
  1. MINOCYCLINE [Suspect]
     Active Substance: MINOCYCLINE HYDROCHLORIDE
     Indication: Impetigo
  2. RISPERIDONE [Suspect]
     Active Substance: RISPERIDONE
     Indication: Delusion of parasitosis
  3. PIMOZIDE [Concomitant]
     Active Substance: PIMOZIDE
     Indication: Delusion of parasitosis
     Dosage: WITH A PLAN TO UP-TITRATE BY 0.5 MG EVERY 2-3 WEEKS TO REACH 3 MG DAILY
     Route: 048
  4. PIMOZIDE [Concomitant]
     Active Substance: PIMOZIDE
     Route: 048
  5. PIMOZIDE [Concomitant]
     Active Substance: PIMOZIDE
     Dosage: FOR 2 YEARS
     Route: 048
  6. PIMOZIDE [Concomitant]
     Active Substance: PIMOZIDE
     Route: 048
  7. BENZTROPINE [Concomitant]
     Active Substance: BENZTROPINE
     Indication: Akathisia
     Route: 048
  8. BENZTROPINE [Concomitant]
     Active Substance: BENZTROPINE
     Route: 048

REACTIONS (1)
  - Drug ineffective for unapproved indication [Unknown]
